FAERS Safety Report 9139239 (Version 1)
Quarter: 2013Q1

REPORT INFORMATION
  Report Type: Spontaneous
  Country: US (occurrence: None)
  Receive Date: 20130205
  Receipt Date: 20130205
  Transmission Date: 20140127
  Serious: Yes (Death)
  Sender: FDA-Public Use
  Company Number: IMP_06183_2013

PATIENT
  Age: 46 Year
  Sex: Female

DRUGS (6)
  1. BUPROPION [Suspect]
     Indication: PRODUCT USED FOR UNKNOWN INDICATION
     Dosage: (DF)
     Route: 048
  2. LEVOCITIRIZINE [Suspect]
     Dosage: (DF)
     Route: 048
  3. TEMAZEPAM [Suspect]
     Dosage: (DF)
     Route: 048
  4. CLONAZEPAM [Suspect]
     Dosage: (DF)
     Route: 048
  5. HYDROCHLOROTHIAZIDE [Suspect]
     Dosage: (DF)
     Route: 048
  6. THYROID PREPARATIONS [Suspect]
     Dosage: (DF)
     Route: 048

REACTIONS (4)
  - Respiratory arrest [None]
  - Cardiac arrest [None]
  - Completed suicide [None]
  - Poisoning [None]
